FAERS Safety Report 9227580 (Version 1)
Quarter: 2013Q2

REPORT INFORMATION
  Report Type: Spontaneous
  Country: CO (occurrence: CO)
  Receive Date: 20130412
  Receipt Date: 20130412
  Transmission Date: 20140414
  Serious: Yes (Other)
  Sender: FDA-Public Use
  Company Number: CO-VERTEX PHARMACEUTICALS INC.-2013-001951

PATIENT
  Age: 66 Year
  Sex: Male

DRUGS (5)
  1. INCIVO [Suspect]
     Indication: HEPATITIS C
     Dosage: 750 MG, TID
     Route: 048
     Dates: start: 20130123
  2. PEGINTERFERON ALFA [Concomitant]
     Indication: HEPATITIS C
     Dosage: DOSAGE FORM: AMPOULES
     Route: 058
     Dates: start: 20130123
  3. PEGINTERFERON ALFA [Concomitant]
     Dosage: DOSAGE FORM: AMPOULES
     Route: 058
  4. PEGINTERFERON ALFA [Concomitant]
     Dosage: DOSAGE FORM: AMPOULES, FOR ONE WEEK
     Route: 058
  5. RIBAVIRIN [Concomitant]
     Indication: HEPATITIS C
     Dosage: DOSAGE FORM: TABLETS, 600 MG IN THE MORNING AND 400 MG IN THE NIGHT
     Route: 048
     Dates: start: 20130123

REACTIONS (5)
  - Neutrophil count decreased [Unknown]
  - Platelet count decreased [Unknown]
  - Off label use [Unknown]
  - Vomiting [Unknown]
  - Nausea [Unknown]
